FAERS Safety Report 8606125-9 (Version None)
Quarter: 2012Q3

REPORT INFORMATION
  Report Type: 
  Country: None (occurrence: None)
  Receive Date: 20120820
  Receipt Date: 19931108
  Transmission Date: 20120928
  Serious: Yes (Death, Other)
  Sender: FDA-Public Use
  Company Number: US-ROCHE-1100472

PATIENT
  Sex: Male

DRUGS (11)
  1. ACTIVASE [Suspect]
     Indication: ACUTE MYOCARDIAL INFARCTION
  2. COLACE [Concomitant]
     Route: 048
  3. VALIUM [Concomitant]
     Route: 048
  4. COMPAZINE [Concomitant]
     Route: 042
  5. DOPAMINE HCL [Concomitant]
     Dosage: 250 CC
  6. HALCION [Concomitant]
     Route: 048
  7. COMPAZINE [Concomitant]
  8. TYLENOL [Concomitant]
     Route: 048
  9. DOPAMINE HCL [Concomitant]
     Dosage: 250 UNITS
  10. MOM [Concomitant]
     Dosage: 30 UNITS
     Route: 048
  11. RIOPAN [Concomitant]
     Dosage: 30 UNITS
     Route: 048

REACTIONS (4)
  - CARDIOGENIC SHOCK [None]
  - BRADYCARDIA [None]
  - CARDIAC FAILURE CONGESTIVE [None]
  - DYSPNOEA [None]
